FAERS Safety Report 24411825 (Version 2)
Quarter: 2024Q4

REPORT INFORMATION
  Report Type: Spontaneous
  Country: AT (occurrence: AT)
  Receive Date: 20241008
  Receipt Date: 20241223
  Transmission Date: 20250115
  Serious: Yes (Other)
  Sender: ROCHE
  Company Number: AT-ROCHE-10000096567

PATIENT
  Age: 52 Year
  Sex: Female

DRUGS (2)
  1. ALECTINIB [Suspect]
     Active Substance: ALECTINIB
     Indication: Non-small cell lung cancer
     Dosage: DOSE IS 600 MG (FOUR 150 MG CAPSULES) TAKEN TWICE DAILY (TOTAL DAILY DOSE OF 1200 MG)
     Route: 065
     Dates: start: 201801
  2. ALECTINIB [Suspect]
     Active Substance: ALECTINIB
     Dosage: DOSE IS 450 MG (THREE 150 CAPSULES) TAKEN TWICE DAILY (TOTAL DAILY DOSE OF 900 MG)
     Route: 065
     Dates: end: 202405

REACTIONS (3)
  - Metastasis [Not Recovered/Not Resolved]
  - Anaemia [Recovered/Resolved]
  - Blood creatine phosphokinase increased [Recovered/Resolved]

NARRATIVE: CASE EVENT DATE: 20180309
